FAERS Safety Report 12157486 (Version 2)
Quarter: 2016Q1

REPORT INFORMATION
  Report Type: Report from Study
  Country: CA (occurrence: CA)
  Receive Date: 20160308
  Receipt Date: 20160318
  Transmission Date: 20160526
  Serious: Yes (Other)
  Sender: FDA-Public Use
  Company Number: CA-BEH-2016059726

PATIENT
  Age: 33 Year
  Sex: Female

DRUGS (1)
  1. BERINERT [Suspect]
     Active Substance: HUMAN C1-ESTERASE INHIBITOR
     Indication: HEREDITARY ANGIOEDEMA
     Dosage: ONGOING
     Route: 042
     Dates: start: 20151118

REACTIONS (4)
  - Lip swelling [Unknown]
  - Pain [Unknown]
  - Abdominal distension [Unknown]
  - Swollen tongue [Unknown]

NARRATIVE: CASE EVENT DATE: 201602
